FAERS Safety Report 10344106 (Version 1)
Quarter: 2014Q3

REPORT INFORMATION
  Report Type: Spontaneous
  Country: CN (occurrence: CN)
  Receive Date: 20140728
  Receipt Date: 20140728
  Transmission Date: 20150326
  Serious: Yes (Other)
  Sender: FDA-Public Use
  Company Number: CN-ROCHE-1439445

PATIENT
  Sex: Female

DRUGS (3)
  1. VITAMIN C [Concomitant]
     Active Substance: ASCORBIC ACID
     Route: 041
     Dates: start: 20130724, end: 20130829
  2. PEGASYS [Suspect]
     Active Substance: PEGINTERFERON ALFA-2A
     Indication: HEPATITIS C
     Route: 058
     Dates: start: 20130824, end: 20130825
  3. RIBAVIRIN. [Suspect]
     Active Substance: RIBAVIRIN
     Indication: HEPATITIS C
     Dosage: BRAND NAME: HUALESHA
     Route: 048
     Dates: start: 20130724, end: 20130829

REACTIONS (4)
  - Musculoskeletal discomfort [Recovering/Resolving]
  - Appetite disorder [Recovering/Resolving]
  - Mouth ulceration [Recovering/Resolving]
  - Pyrexia [Recovering/Resolving]
